FAERS Safety Report 8572325-X (Version None)
Quarter: 2012Q3

REPORT INFORMATION
  Report Type: 
  Country: None (occurrence: None)
  Receive Date: 20120806
  Receipt Date: 20120725
  Transmission Date: 20120928
  Serious: Yes (Hospitalization, Other)
  Sender: FDA-Public Use
  Company Number: FR-JNJFOC-20120711406

PATIENT
  Sex: Female

DRUGS (4)
  1. RISPERDAL [Suspect]
     Indication: PRODUCT USED FOR UNKNOWN INDICATION
     Route: 048
  2. LOXAPINE HCL [Suspect]
     Indication: PRODUCT USED FOR UNKNOWN INDICATION
     Route: 065
  3. EFFEXOR [Concomitant]
     Route: 065
  4. RISPERDAL [Suspect]
     Route: 048
     Dates: start: 20080101

REACTIONS (4)
  - CYTOLYTIC HEPATITIS [None]
  - BLOOD ALKALINE PHOSPHATASE INCREASED [None]
  - PSYCHOTIC DISORDER [None]
  - GAMMA-GLUTAMYLTRANSFERASE INCREASED [None]
